FAERS Safety Report 6151367-8 (Version None)
Quarter: 2009Q2

REPORT INFORMATION
  Report Type: 
  Country: None (occurrence: None)
  Receive Date: 20090410
  Receipt Date: 20090401
  Transmission Date: 20091009
  Serious: No
  Sender: FDA-Public Use
  Company Number: US-JNJFOC-20090400709

PATIENT
  Sex: Female
  Weight: 49.9 kg

DRUGS (8)
  1. FENTANYL TRANSDERMAL SYSTEM [Suspect]
     Indication: ARTHRITIS
     Route: 062
  2. PROCARDIA [Concomitant]
     Indication: HYPERTENSION
     Route: 048
  3. LOSARTAN POTASSIUM [Concomitant]
     Indication: HYPERTENSION
     Route: 048
  4. TENORMIN [Concomitant]
     Indication: HYPERTENSION
     Route: 048
  5. CELEXA [Concomitant]
     Indication: DEPRESSION
     Route: 048
  6. LOVASTATIN [Concomitant]
     Indication: HYPERTENSION
     Route: 048
  7. TRAZODONE HCL [Concomitant]
     Indication: SLEEP DISORDER
     Dosage: 50 MG TWO
     Route: 048
  8. XANAX [Concomitant]
     Indication: ANXIETY
     Dosage: AS NEEDED
     Route: 048

REACTIONS (2)
  - INADEQUATE ANALGESIA [None]
  - WRONG TECHNIQUE IN DRUG USAGE PROCESS [None]
